FAERS Safety Report 7544972-5 (Version None)
Quarter: 2011Q2

REPORT INFORMATION
  Report Type: 
  Country: None (occurrence: None)
  Receive Date: 20110614
  Receipt Date: 20110105
  Transmission Date: 20111010
  Serious: Yes (Other)
  Sender: FDA-Public Use
  Company Number: US-BAYER-201028811NA

PATIENT
  Age: 23 Year
  Sex: Female
  Weight: 52.154 kg

DRUGS (5)
  1. YAZ [Suspect]
     Indication: ORAL CONTRACEPTION
     Dosage: UNK
     Route: 048
     Dates: start: 20060101, end: 20070101
  2. ALBUTEROL SULFATE AUTOHALER [Concomitant]
     Dosage: UNK
     Dates: start: 20020101
  3. NEXIUM [Concomitant]
  4. YAZ [Suspect]
     Dosage: UNK
     Dates: start: 20080101, end: 20100101
  5. NUVARING [Concomitant]

REACTIONS (5)
  - DEEP VEIN THROMBOSIS [None]
  - BILIARY DYSKINESIA [None]
  - PULMONARY EMBOLISM [None]
  - PAIN [None]
  - GALLBLADDER DISORDER [None]
